FAERS Safety Report 5916248-0 (Version None)
Quarter: 2008Q4

REPORT INFORMATION
  Report Type: 
  Country: None (occurrence: None)
  Receive Date: 20081013
  Receipt Date: 20081002
  Transmission Date: 20090506
  Serious: Yes (Death, Other)
  Sender: FDA-Public Use
  Company Number: PHBS2008IN05948

PATIENT

DRUGS (2)
  1. CYCLOSPORINE [Suspect]
     Indication: IDIOPATHIC THROMBOCYTOPENIC PURPURA
     Dosage: 2.5 MG/KG, BID
  2. CYCLOSPORINE [Suspect]
     Dosage: 3 MG/KG/DAY

REACTIONS (3)
  - HAEMORRHAGE INTRACRANIAL [None]
  - IDIOPATHIC THROMBOCYTOPENIC PURPURA [None]
  - SKIN HAEMORRHAGE [None]
